FAERS Safety Report 5468107-8 (Version None)
Quarter: 2007Q3

REPORT INFORMATION
  Report Type: 
  Country: None (occurrence: None)
  Receive Date: 20070820
  Receipt Date: 20070420
  Transmission Date: 20080115
  Serious: No
  Sender: FDA-Public Use
  Company Number: WAES 0704USA02448

PATIENT
  Age: 63 Year
  Sex: Male
  Weight: 94.8018 kg

DRUGS (6)
  1. JANUVIA [Suspect]
     Dosage: 100 MG/DAILY/PO
     Route: 048
     Dates: start: 20070109, end: 20070206
  2. ACTOS [Concomitant]
  3. AVAPRO [Concomitant]
  4. CRESTOR [Concomitant]
  5. PRILOSEC [Concomitant]
  6. ATENOLOL [Concomitant]

REACTIONS (1)
  - CONSTIPATION [None]
